FAERS Safety Report 9790253 (Version 1)
Quarter: 2013Q4

REPORT INFORMATION
  Report Type: Spontaneous
  Country: US (occurrence: US)
  Receive Date: 20131231
  Receipt Date: 20131231
  Transmission Date: 20140711
  Serious: Yes (Other)
  Sender: FDA-Public Use
  Company Number: US-PFIZER INC-2013369015

PATIENT
  Age: 64 Year
  Sex: Male

DRUGS (8)
  1. CYTARABINE [Suspect]
     Indication: ACUTE MYELOID LEUKAEMIA
     Dosage: UNK
     Dates: start: 201109
  2. DAUNORUBICIN [Suspect]
     Indication: ACUTE MYELOID LEUKAEMIA
     Dosage: UNK
     Dates: start: 201109
  3. CYCLOSPORIN A [Suspect]
     Indication: ACUTE MYELOID LEUKAEMIA
     Dosage: UNK
     Dates: start: 201109
  4. CYCLOPHOSPHAMIDE [Concomitant]
     Indication: LYMPHOCYTIC LEUKAEMIA
     Dosage: UNK
     Dates: start: 201105
  5. VINCRISTINE [Concomitant]
     Indication: LYMPHOCYTIC LEUKAEMIA
     Dosage: UNK
     Dates: start: 201105
  6. DOXORUBICIN [Concomitant]
     Indication: LYMPHOCYTIC LEUKAEMIA
     Dosage: UNK
     Dates: start: 201105
  7. METHOTREXATE [Concomitant]
     Indication: PROPHYLAXIS
     Dosage: UNK
     Route: 037
     Dates: start: 201105
  8. DEXAMETHASONE [Concomitant]
     Indication: LYMPHOCYTIC LEUKAEMIA
     Dosage: UNK
     Dates: start: 201105

REACTIONS (5)
  - Clostridium difficile colitis [Recovered/Resolved]
  - Bacteraemia [Recovered/Resolved]
  - Sepsis [Recovered/Resolved]
  - Adrenal insufficiency [Recovered/Resolved]
  - Febrile neutropenia [Recovered/Resolved]
